FAERS Safety Report 17462936 (Version 1)
Quarter: 2020Q1

REPORT INFORMATION
  Report Type: Spontaneous
  Country: US (occurrence: US)
  Receive Date: 20191106
  Receipt Date: 20191106
  Transmission Date: 20200409
  Serious: Yes (Hospitalization)
  Sender: FDA-Public Use
  Company Number: None

PATIENT
  Age: 17 Year
  Sex: Male

DRUGS (5)
  1. ^JUUL^ [Suspect]
     Active Substance: DEVICE\NICOTINE
  2. THC VAPING [Suspect]
     Active Substance: .DELTA.8-TETRAHYDROCANNABINOL\DEVICE\HERBALS
  3. ^NIC^ (NICOTINE SALTS E-LIQUIDS (IN A SQUEEZE BOTTLE)^ [Suspect]
     Active Substance: NICOTINE\PROPYLENE GLYCOL
  4. DANK VAPES [THC] [Suspect]
     Active Substance: .DELTA.8-TETRAHYDROCANNABINOL\DEVICE\HERBALS
  5. ^TKO VAPOR E-CIGS^ [Suspect]
     Active Substance: DEVICE\NICOTINE

REACTIONS (4)
  - Dyspnoea [None]
  - Respiratory tract infection [None]
  - Cough [None]
  - Chest pain [None]
